FAERS Safety Report 6024378-0 (Version None)
Quarter: 2008Q4

REPORT INFORMATION
  Report Type: 
  Country: None (occurrence: None)
  Receive Date: 20081231
  Receipt Date: 20081223
  Transmission Date: 20090506
  Serious: Yes (Other)
  Sender: FDA-Public Use
  Company Number: US-JNJFOC-20080706250

PATIENT
  Age: 40 Year
  Sex: Female

DRUGS (2)
  1. REMICADE [Suspect]
     Indication: RHEUMATOID ARTHRITIS
     Dosage: MULTIPLE DATES OF THERAPY
     Route: 042
  2. ARAVA [Concomitant]

REACTIONS (2)
  - MONONEUROPATHY MULTIPLEX [None]
  - PERONEAL NERVE PALSY [None]
